FAERS Safety Report 16231568 (Version 3)
Quarter: 2019Q4

REPORT INFORMATION
  Report Type: Spontaneous
  Country: CA (occurrence: CA)
  Receive Date: 20190424
  Receipt Date: 20191107
  Transmission Date: 20200122
  Serious: Yes (Hospitalization, Other)
  Sender: FDA-Public Use
  Company Number: CA-009507513-1904CAN009572

PATIENT
  Age: 70 Year
  Sex: Female

DRUGS (32)
  1. CLOZAPINE. [Suspect]
     Active Substance: CLOZAPINE
     Indication: PARKINSON^S DISEASE
     Dosage: UNK
     Route: 065
  2. FLUDROCORTISONE [Suspect]
     Active Substance: FLUDROCORTISONE
     Indication: PSYCHOTIC DISORDER
     Dosage: 0.1 MILLIGRAM, 1 EVERY 1 DAY
     Route: 065
  3. QUETIAPINE FUMARATE. [Concomitant]
     Active Substance: QUETIAPINE FUMARATE
     Indication: PRODUCT USED FOR UNKNOWN INDICATION
     Dosage: UNK
     Route: 065
  4. SINEMET [Suspect]
     Active Substance: CARBIDOPA\LEVODOPA
     Indication: PARKINSON^S DISEASE
     Dosage: 250 MILLIGRAM, QD
     Route: 065
  5. AMANTADINE. [Suspect]
     Active Substance: AMANTADINE HYDROCHLORIDE
     Indication: PRODUCT USED FOR UNKNOWN INDICATION
  6. CLOZAPINE. [Suspect]
     Active Substance: CLOZAPINE
     Indication: PSYCHOTIC DISORDER
     Dosage: 37.5 MILLIGRAM, 1 EVERY 1 DAY
     Route: 065
  7. ENTACAPONE. [Suspect]
     Active Substance: ENTACAPONE
     Indication: PARKINSON^S DISEASE
  8. MIRAPEX [Suspect]
     Active Substance: PRAMIPEXOLE DIHYDROCHLORIDE
     Dosage: UNK
     Route: 065
  9. NABILONE [Suspect]
     Active Substance: NABILONE
     Indication: PARKINSON^S DISEASE
     Dosage: UNK
     Route: 065
  10. QUETIAPINE FUMARATE. [Suspect]
     Active Substance: QUETIAPINE FUMARATE
     Indication: PSYCHOTIC DISORDER
  11. MIRAPEX [Suspect]
     Active Substance: PRAMIPEXOLE DIHYDROCHLORIDE
     Indication: PARKINSON^S DISEASE
     Dosage: 4.5 MILLIGRAM, 1 EVERY 1 DAY
     Route: 065
  12. SINEMET [Suspect]
     Active Substance: CARBIDOPA\LEVODOPA
     Indication: PRODUCT USED FOR UNKNOWN INDICATION
     Dosage: 100 MILLIGRAM, QD
     Route: 065
  13. AMANTADINE. [Suspect]
     Active Substance: AMANTADINE HYDROCHLORIDE
     Indication: PSYCHOTIC DISORDER
     Dosage: 300.0 MILLIGRAM, 1 EVERY 1 DAY
     Route: 065
  14. SINEMET [Suspect]
     Active Substance: CARBIDOPA\LEVODOPA
     Indication: PARKINSONISM
     Dosage: UNK
     Route: 065
  15. AMANTADINE. [Suspect]
     Active Substance: AMANTADINE HYDROCHLORIDE
     Indication: PARKINSONISM
  16. ENTACAPONE. [Suspect]
     Active Substance: ENTACAPONE
     Indication: PSYCHOTIC DISORDER
     Dosage: 1000.0 MILLIGRAM, 1 EVERY 1 DAY
     Route: 065
  17. FLORINEF ACETATE [Suspect]
     Active Substance: FLUDROCORTISONE ACETATE
     Indication: PRODUCT USED FOR UNKNOWN INDICATION
  18. PRAMIPEXOLE. [Suspect]
     Active Substance: PRAMIPEXOLE
     Dosage: 0.75 MILLIGRAM, QD
     Route: 065
  19. AMANTADINE. [Suspect]
     Active Substance: AMANTADINE HYDROCHLORIDE
     Indication: PARKINSON^S DISEASE
  20. SINEMET [Suspect]
     Active Substance: CARBIDOPA\LEVODOPA
     Dosage: 1 DOSAGE FORM, QD
  21. FLORINEF ACETATE [Suspect]
     Active Substance: FLUDROCORTISONE ACETATE
     Indication: PSYCHOTIC DISORDER
     Dosage: 0.1 MILLIGRAM, 1 EVERY 1 DAY
     Route: 065
  22. FLORINEF ACETATE [Suspect]
     Active Substance: FLUDROCORTISONE ACETATE
     Indication: PARKINSON^S DISEASE
  23. NABILONE [Suspect]
     Active Substance: NABILONE
     Dosage: 2 DOSAGE FORM, QD
     Route: 048
  24. NABILONE [Suspect]
     Active Substance: NABILONE
     Dosage: 1 MILLIGRAM, 1 EVERY 1 DAY
     Route: 065
  25. PRAMIPEXOLE. [Suspect]
     Active Substance: PRAMIPEXOLE
     Indication: PARKINSONISM
     Dosage: UNK
     Route: 065
  26. PRAMIPEXOLE. [Suspect]
     Active Substance: PRAMIPEXOLE
     Dosage: 1.5 MILLIGRAM, 1 EVERY 1 DAY
     Route: 065
  27. NABILONE [Suspect]
     Active Substance: NABILONE
     Indication: PRODUCT USED FOR UNKNOWN INDICATION
     Dosage: 1.0 MILLIGRAM,1 EVERY 1 DAY
     Route: 048
  28. PRAMIPEXOLE. [Suspect]
     Active Substance: PRAMIPEXOLE
     Indication: PRODUCT USED FOR UNKNOWN INDICATION
     Dosage: 4.5 MILLIGRAM, 1 EVERY 1 DAY
     Route: 065
  29. PRAMIPEXOLE. [Suspect]
     Active Substance: PRAMIPEXOLE
     Indication: PARKINSON^S DISEASE
     Dosage: 12.5  MILLIGRAM, 1 EVERY 1 DAY
     Route: 065
  30. QUETIAPINE FUMARATE. [Suspect]
     Active Substance: QUETIAPINE FUMARATE
     Indication: PRODUCT USED FOR UNKNOWN INDICATION
     Dosage: 12.5 MILLIGRAM, 1 EVERY 1 DAY
     Route: 061
  31. QUETIAPINE FUMARATE. [Suspect]
     Active Substance: QUETIAPINE FUMARATE
     Indication: PSYCHOTIC DISORDER
  32. QUETIAPINE FUMARATE. [Suspect]
     Active Substance: QUETIAPINE FUMARATE
     Indication: PRODUCT USED FOR UNKNOWN INDICATION
     Dosage: 12.5 MILLIGRAM, 1 EVERY, 1 DAY
     Route: 065

REACTIONS (8)
  - Psychotic disorder [Recovering/Resolving]
  - Therapeutic product effect incomplete [Recovering/Resolving]
  - Acute psychosis [Recovering/Resolving]
  - Therapeutic response shortened [Recovering/Resolving]
  - Orthostatic hypotension [Recovering/Resolving]
  - Dystonia [Recovering/Resolving]
  - Parkinson^s disease psychosis [Recovering/Resolving]
  - Dyskinesia [Recovering/Resolving]
